FAERS Safety Report 5802067-2 (Version None)
Quarter: 2008Q3

REPORT INFORMATION
  Report Type: 
  Country: None (occurrence: None)
  Receive Date: 20080707
  Receipt Date: 20080623
  Transmission Date: 20090109
  Serious: Yes (Other)
  Sender: FDA-Public Use
  Company Number: PHHY2008JP11625

PATIENT
  Age: 63 Year
  Sex: Female

DRUGS (3)
  1. VOLTAREN [Suspect]
     Indication: PYREXIA
     Dosage: UNK
     Route: 048
     Dates: start: 20080520
  2. VOLTAREN [Suspect]
     Indication: BACK PAIN
  3. STOMACHIC MIXTURE [Concomitant]

REACTIONS (3)
  - DISCOMFORT [None]
  - HYPOTHERMIA [None]
  - INCORRECT DOSE ADMINISTERED [None]
